FAERS Safety Report 24235946 (Version 1)
Quarter: 2024Q3

REPORT INFORMATION
  Report Type: Spontaneous
  Country: US (occurrence: US)
  Receive Date: 20240822
  Receipt Date: 20240822
  Transmission Date: 20241017
  Serious: No
  Sender: ENDO
  Company Number: ENDB23-04534

PATIENT
  Sex: Male

DRUGS (3)
  1. TESTOPEL [Suspect]
     Active Substance: TESTOSTERONE
     Indication: Product used for unknown indication
     Dosage: UNK UNKNOWN, UNKNOWN (FIVE TO SIX PELLETS)
     Route: 058
     Dates: start: 20231201
  2. TESTOPEL [Suspect]
     Active Substance: TESTOSTERONE
     Indication: Product used for unknown indication
     Dosage: UNK UNKNOWN, UNKNOWN (FIVE TO SIX PELLETS)
     Route: 058
     Dates: start: 20231201
  3. TESTOPEL [Suspect]
     Active Substance: TESTOSTERONE
     Indication: Product used for unknown indication
     Dosage: UNK UNKNOWN, UNKNOWN (FIVE TO SIX PELLETS)
     Route: 058
     Dates: start: 20231201

REACTIONS (1)
  - Procedural pain [Unknown]

NARRATIVE: CASE EVENT DATE: 20231201
